FAERS Safety Report 10145876 (Version 1)
Quarter: 2014Q2

REPORT INFORMATION
  Report Type: Spontaneous
  Country: US (occurrence: US)
  Receive Date: 20140501
  Receipt Date: 20140501
  Transmission Date: 20141212
  Serious: No
  Sender: FDA-Public Use
  Company Number: US-ABBVIE-13P-163-1084818-00

PATIENT
  Age: 84 Year
  Sex: Male
  Weight: 59.02 kg

DRUGS (2)
  1. CREON 24 [Suspect]
     Indication: PANCREATIC ENZYME ABNORMALITY
     Dosage: 2 CAPSULES WITH EACH MEAL
     Dates: start: 201211
  2. PRILOSEC [Concomitant]
     Indication: GASTROOESOPHAGEAL REFLUX DISEASE

REACTIONS (2)
  - Rash [Not Recovered/Not Resolved]
  - Pruritus [Not Recovered/Not Resolved]
